FAERS Safety Report 21410565 (Version 2)
Quarter: 2022Q4

REPORT INFORMATION
  Report Type: Spontaneous
  Country: JP (occurrence: JP)
  Receive Date: 20221005
  Receipt Date: 20221101
  Transmission Date: 20230112
  Serious: Yes (Death, Other)
  Sender: FDA-Public Use
  Company Number: JP-NBI-S202200249BIPI

PATIENT
  Age: 71 Year
  Sex: Male
  Weight: 45.3 kg

DRUGS (2)
  1. GILOTRIF [Suspect]
     Active Substance: AFATINIB
     Indication: Adenosquamous cell lung cancer
     Route: 065
  2. GILOTRIF [Suspect]
     Active Substance: AFATINIB
     Indication: Lung adenocarcinoma

REACTIONS (3)
  - Cardiac failure [Fatal]
  - Pulmonary oedema [Unknown]
  - Hyponatraemia [Unknown]
